FAERS Safety Report 9320013 (Version 1)
Quarter: 2013Q2

REPORT INFORMATION
  Report Type: Spontaneous
  Country: US (occurrence: US)
  Receive Date: 20130530
  Receipt Date: 20130530
  Transmission Date: 20140414
  Serious: Yes (Death)
  Sender: FDA-Public Use
  Company Number: US-PFIZER INC-US-WYE-H07563209

PATIENT
  Age: 42 Year
  Sex: Male

DRUGS (2)
  1. PHENERGAN [Suspect]
     Dosage: UNKNOWN
     Route: 048
     Dates: end: 2007
  2. ZOLPIDEM TARTRATE [Suspect]
     Dosage: UNKNOWN
     Route: 048
     Dates: end: 2007

REACTIONS (3)
  - Completed suicide [Fatal]
  - Cardiac arrest [Fatal]
  - Respiratory arrest [Fatal]
